FAERS Safety Report 7096268-6 (Version None)
Quarter: 2010Q4

REPORT INFORMATION
  Report Type: 
  Country: None (occurrence: None)
  Receive Date: 20101111
  Receipt Date: 20101103
  Transmission Date: 20110411
  Serious: Yes (Hospitalization)
  Sender: FDA-Public Use
  Company Number: US-GENZYME-RENA-1000851

PATIENT
  Sex: Male
  Weight: 130.5 kg

DRUGS (9)
  1. RENVELA [Suspect]
     Indication: HYPERPHOSPHATAEMIA
     Dosage: 4.0 G, TID
     Route: 048
     Dates: start: 20090101
  2. RENVELA [Suspect]
     Dosage: 4.0 G, TID
     Route: 048
     Dates: end: 20101027
  3. GABAPENTIN [Concomitant]
     Dosage: UNK
     Route: 065
  4. LEVEMIR [Concomitant]
     Dosage: UNK
     Route: 065
  5. MINOXIDIL [Concomitant]
     Dosage: UNK
     Route: 065
  6. PHOSLO [Concomitant]
     Dosage: UNK
     Route: 065
  7. SENSIPAR [Concomitant]
     Dosage: UNK
     Route: 065
  8. SODIUM BICARBONATE [Concomitant]
     Dosage: UNK
     Route: 065
  9. FOSRENOL [Concomitant]
     Dosage: UNK
     Route: 065

REACTIONS (4)
  - DERMATITIS [None]
  - FALL [None]
  - HYPERPHOSPHATAEMIA [None]
  - LOWER LIMB FRACTURE [None]
